FAERS Safety Report 8215612-7 (Version None)
Quarter: 2012Q1

REPORT INFORMATION
  Report Type: 
  Country: None (occurrence: None)
  Receive Date: 20120316
  Receipt Date: 20120316
  Transmission Date: 20120608
  Serious: Yes (Death, Hospitalization, Other)
  Sender: FDA-Public Use
  Company Number: US-ABBOTT-12P-163-0906899-00

PATIENT
  Sex: Female
  Weight: 72.64 kg

DRUGS (10)
  1. CALCIUM + VITAMIN D [Concomitant]
     Indication: PRODUCT USED FOR UNKNOWN INDICATION
     Dosage: 600 MG DAILY
  2. OXCARBAZEPINE [Concomitant]
     Indication: FACIAL PAIN
     Dosage: UP TO 4 TABLETS (1200 MG) DAILY PRN
  3. VITAMIN D2 [Concomitant]
     Indication: PRODUCT USED FOR UNKNOWN INDICATION
  4. FENTANYL [Concomitant]
     Indication: PRODUCT USED FOR UNKNOWN INDICATION
     Dosage: ONE PATCH EVERY 72 HOURS
     Route: 061
  5. MULTIVITAMIN [Concomitant]
     Indication: PRODUCT USED FOR UNKNOWN INDICATION
     Dosage: DAILY
  6. HUMIRA [Suspect]
     Indication: RHEUMATOID ARTHRITIS
     Route: 058
     Dates: start: 20090501, end: 20120101
  7. PLAQUE [Concomitant]
     Indication: PRODUCT USED FOR UNKNOWN INDICATION
     Dosage: 200 MG DAILY
  8. VITAMIN B-12 [Concomitant]
     Indication: PRODUCT USED FOR UNKNOWN INDICATION
     Dosage: 2000 MCG DAILY
  9. OXYCODONE HCL [Concomitant]
     Indication: PAIN
     Dosage: EVERY THREE HOURS AS NEEDED
  10. OXYCODONE HCL [Concomitant]
     Dosage: FIVE TO SIX DOSES

REACTIONS (22)
  - LYMPHADENOPATHY [None]
  - PAIN [None]
  - ASTHENIA [None]
  - CONFUSIONAL STATE [None]
  - FACIAL PAIN [None]
  - SOMNOLENCE [None]
  - METASTATIC NEOPLASM [None]
  - VOMITING [None]
  - ENCEPHALOPATHY [None]
  - HYPONATRAEMIA [None]
  - BRAIN NEOPLASM MALIGNANT [None]
  - ACTIVITIES OF DAILY LIVING IMPAIRED [None]
  - HYPOPHAGIA [None]
  - RETCHING [None]
  - GENERAL PHYSICAL HEALTH DETERIORATION [None]
  - NAUSEA [None]
  - PAIN IN EXTREMITY [None]
  - FAILURE TO THRIVE [None]
  - NERVOUS SYSTEM DISORDER [None]
  - DYSPHAGIA [None]
  - RHEUMATOID ARTHRITIS [None]
  - MALAISE [None]
